FAERS Safety Report 4618834-7 (Version None)
Quarter: 2005Q1

REPORT INFORMATION
  Report Type: 
  Country: None (occurrence: None)
  Receive Date: 20050323
  Receipt Date: 20050308
  Transmission Date: 20050727
  Serious: Yes (Hospitalization)
  Sender: FDA-Public Use
  Company Number: USA050392741

PATIENT
  Age: 32 Year
  Sex: Male

DRUGS (2)
  1. PROZAC [Suspect]
     Dosage: 40 MG
  2. PEPCID [Concomitant]

REACTIONS (6)
  - ERECTILE DYSFUNCTION [None]
  - LIBIDO DECREASED [None]
  - MEDICATION ERROR [None]
  - MUSCLE SPASMS [None]
  - PROSTATITIS [None]
  - URINARY HESITATION [None]
